FAERS Safety Report 5296674-6 (Version None)
Quarter: 2007Q2

REPORT INFORMATION
  Report Type: 
  Country: None (occurrence: None)
  Receive Date: 20070413
  Receipt Date: 20070402
  Transmission Date: 20071010
  Serious: Yes (Death, Life-Threatening, Hospitalization)
  Sender: FDA-Public Use
  Company Number: DE-PFIZER INC-2007014332

PATIENT
  Sex: Male
  Weight: 65 kg

DRUGS (5)
  1. SU-011,248 [Suspect]
     Indication: METASTATIC RENAL CELL CARCINOMA
     Route: 048
     Dates: start: 20060207, end: 20070216
  2. DIPYRONE TAB [Concomitant]
     Dosage: TEXT:80 %
     Route: 048
  3. OMEPRAZOLE [Concomitant]
     Route: 048
     Dates: start: 20050101
  4. METOPROLOL SUCCINATE [Concomitant]
     Route: 048
     Dates: start: 20040101
  5. ASPIRIN [Concomitant]
     Route: 048
     Dates: start: 20040101

REACTIONS (4)
  - DEATH [None]
  - MULTI-ORGAN FAILURE [None]
  - PNEUMONIA [None]
  - PYREXIA [None]
